FAERS Safety Report 7099035-2 (Version None)
Quarter: 2010Q4

REPORT INFORMATION
  Report Type: 
  Country: None (occurrence: None)
  Receive Date: 20101112
  Receipt Date: 20101029
  Transmission Date: 20110411
  Serious: Yes (Other)
  Sender: FDA-Public Use
  Company Number: PHHY2010HK72910

PATIENT
  Age: 11 Year
  Sex: Male

DRUGS (3)
  1. EXJADE [Suspect]
     Dosage: 20 MG/KG, QD
     Route: 048
  2. AMBISOME [Suspect]
  3. CASPOFUNGIN ACETATE [Suspect]

REACTIONS (2)
  - BONE MARROW TRANSPLANT [None]
  - GRAFT VERSUS HOST DISEASE [None]
